FAERS Safety Report 16755740 (Version 1)
Quarter: 2019Q3

REPORT INFORMATION
  Report Type: Spontaneous
  Country: GB (occurrence: GB)
  Receive Date: 20190829
  Receipt Date: 20190829
  Transmission Date: 20191005
  Serious: Yes (Hospitalization)
  Sender: FDA-Public Use
  Company Number: GB-PFIZER INC-2019366633

PATIENT

DRUGS (1)
  1. PACLITAXEL HOSPIRA [Suspect]
     Active Substance: PACLITAXEL
     Dosage: 124 MG, UNK
     Route: 042

REACTIONS (5)
  - Back pain [Recovered/Resolved]
  - Dyspnoea [Recovered/Resolved]
  - Flushing [Recovered/Resolved]
  - Malaise [Recovered/Resolved]
  - Cold sweat [Recovered/Resolved]

NARRATIVE: CASE EVENT DATE: 20190731
